FAERS Safety Report 26093766 (Version 1)
Quarter: 2025Q4

REPORT INFORMATION
  Report Type: Report from Study
  Country: IN (occurrence: IN)
  Receive Date: 20251126
  Receipt Date: 20251126
  Transmission Date: 20260118
  Serious: Yes (Other)
  Sender: NOVARTIS
  Company Number: IN-002147023-NVSC2023IN120733

PATIENT
  Age: 42 Year
  Sex: Female

DRUGS (2)
  1. TASIGNA [Suspect]
     Active Substance: NILOTINIB
     Indication: Chronic myeloid leukaemia
     Dosage: 300 MG, BID
     Route: 048
     Dates: start: 20230410
  2. TASIGNA [Suspect]
     Active Substance: NILOTINIB
     Dosage: 300 MG, BID
     Route: 048
     Dates: start: 20230414

REACTIONS (28)
  - Hypothyroidism [Unknown]
  - Electrocardiogram QT interval abnormal [Unknown]
  - Haemoglobin decreased [Not Recovered/Not Resolved]
  - Weight increased [Unknown]
  - Pallor [Unknown]
  - Abdominal pain upper [Unknown]
  - Splenomegaly [Unknown]
  - Blood bilirubin abnormal [Unknown]
  - Amylase abnormal [Unknown]
  - White blood cell count abnormal [Unknown]
  - Vitamin B12 abnormal [Unknown]
  - Vitamin D abnormal [Unknown]
  - Blood thyroid stimulating hormone abnormal [Unknown]
  - Asthenia [Unknown]
  - Erythema [Unknown]
  - Pruritus [Unknown]
  - Face oedema [Unknown]
  - Oedema peripheral [Unknown]
  - Back pain [Unknown]
  - Pyrexia [Unknown]
  - Weight decreased [Unknown]
  - Blood alkaline phosphatase abnormal [Unknown]
  - Blood lactate dehydrogenase abnormal [Unknown]
  - Blood creatinine abnormal [Unknown]
  - Electrocardiogram abnormal [Unknown]
  - Full blood count abnormal [Unknown]
  - Alanine aminotransferase abnormal [Unknown]
  - Blood pressure systolic decreased [Unknown]

NARRATIVE: CASE EVENT DATE: 20230515
